FAERS Safety Report 5527058-0 (Version None)
Quarter: 2007Q4

REPORT INFORMATION
  Report Type: 
  Country: None (occurrence: None)
  Receive Date: 20071127
  Receipt Date: 20071119
  Transmission Date: 20080405
  Serious: Yes (Hospitalization)
  Sender: FDA-Public Use
  Company Number: FR-ABBOTT-07P-056-0419132-00

PATIENT
  Sex: Male

DRUGS (6)
  1. ZECLAR [Suspect]
     Indication: HELICOBACTER INFECTION
     Route: 048
     Dates: start: 20070808, end: 20070815
  2. COLCHICINE [Suspect]
     Indication: ARTHRALGIA
     Route: 048
     Dates: start: 20070716, end: 20070817
  3. AMOXICILLIN [Suspect]
     Indication: HELICOBACTER INFECTION
     Route: 048
     Dates: start: 20070808, end: 20070815
  4. AMPHOTERICIN B [Suspect]
     Indication: OESOPHAGEAL CANDIDIASIS
     Route: 048
     Dates: start: 20070801, end: 20070801
  5. ESOMEPRAZOLE [Suspect]
     Indication: GASTRODUODENAL ULCER
     Route: 048
     Dates: start: 20070808, end: 20070815
  6. FLUINDIONE [Concomitant]
     Indication: DRUG USE FOR UNKNOWN INDICATION

REACTIONS (5)
  - DYSPNOEA [None]
  - GENERAL PHYSICAL CONDITION ABNORMAL [None]
  - INFLAMMATION [None]
  - PANCYTOPENIA [None]
  - PYREXIA [None]
